FAERS Safety Report 24984206 (Version 1)
Quarter: 2025Q1

REPORT INFORMATION
  Report Type: Spontaneous
  Country: CN (occurrence: CN)
  Receive Date: 20250219
  Receipt Date: 20250219
  Transmission Date: 20250408
  Serious: Yes (Other)
  Sender: JOHNSON AND JOHNSON
  Company Number: CN-JNJFOC-20250230949

PATIENT
  Age: 58 Year
  Sex: Male
  Weight: 71.5 kg

DRUGS (6)
  1. DARZALEX [Suspect]
     Active Substance: DARATUMUMAB
     Indication: Renal amyloidosis
     Route: 058
     Dates: start: 20250110, end: 20250124
  2. DARZALEX [Suspect]
     Active Substance: DARATUMUMAB
     Indication: Chemotherapy
  3. VELCADE [Suspect]
     Active Substance: BORTEZOMIB
     Indication: Renal amyloidosis
     Route: 058
     Dates: start: 20250110, end: 20250120
  4. VELCADE [Suspect]
     Active Substance: BORTEZOMIB
     Indication: Chemotherapy
  5. DEXAMETHASONE [Suspect]
     Active Substance: DEXAMETHASONE
     Indication: Renal amyloidosis
     Route: 041
     Dates: start: 20250110, end: 20250121
  6. DEXAMETHASONE [Suspect]
     Active Substance: DEXAMETHASONE
     Indication: Chemotherapy

REACTIONS (1)
  - Myelosuppression [Recovered/Resolved]

NARRATIVE: CASE EVENT DATE: 20250121
